FAERS Safety Report 7279780-6 (Version None)
Quarter: 2011Q1

REPORT INFORMATION
  Report Type: 
  Country: None (occurrence: None)
  Receive Date: 20110208
  Receipt Date: 20110203
  Transmission Date: 20110831
  Serious: Yes (Death, Hospitalization)
  Sender: FDA-Public Use
  Company Number: AU-AMGEN-AUSSP2010000225

PATIENT
  Age: 99 Year
  Sex: Male

DRUGS (1)
  1. VECTIBIX [Suspect]
     Indication: COLORECTAL CANCER
     Dosage: 4.3 MG, UNK
     Route: 042
     Dates: start: 20100806, end: 20100824

REACTIONS (2)
  - HOSPITALISATION [None]
  - COLORECTAL CANCER [None]
